FAERS Safety Report 19948442 (Version 2)
Quarter: 2021Q4

REPORT INFORMATION
  Report Type: Spontaneous
  Country: US (occurrence: US)
  Receive Date: 20211013
  Receipt Date: 20211022
  Transmission Date: 20220303
  Serious: Yes (Hospitalization)
  Sender: FDA-Public Use
  Company Number: US-AMGEN-USASP2021155163

PATIENT
  Age: 71 Year
  Sex: Male

DRUGS (1)
  1. ENBREL [Suspect]
     Active Substance: ETANERCEPT
     Indication: Rheumatoid arthritis
     Dosage: 50 MILLIGRAM, QWK
     Route: 065
     Dates: start: 2017

REACTIONS (7)
  - Vomiting [Unknown]
  - Diarrhoea [Unknown]
  - Nasal disorder [Unknown]
  - Depressed mood [Unknown]
  - Musculoskeletal disorder [Unknown]
  - Back disorder [Unknown]
  - COVID-19 [Unknown]
